FAERS Safety Report 18606365 (Version 1)
Quarter: 2020Q4

REPORT INFORMATION
  Report Type: Spontaneous
  Country: US (occurrence: US)
  Receive Date: 20201211
  Receipt Date: 20201211
  Transmission Date: 20210114
  Serious: No
  Sender: FDA-Public Use
  Company Number: US-ASTRAZENECA-2020SF62647

PATIENT
  Sex: Male
  Weight: 90.7 kg

DRUGS (5)
  1. ENTRESTO [Concomitant]
     Active Substance: SACUBITRIL\VALSARTAN
     Route: 065
  2. FARXIGA [Suspect]
     Active Substance: DAPAGLIFLOZIN PROPANEDIOL
     Route: 048
  3. DIGOXIN. [Concomitant]
     Active Substance: DIGOXIN
     Route: 065
  4. TORSEMIDE. [Concomitant]
     Active Substance: TORSEMIDE
     Route: 065
  5. TOPROL XL [Suspect]
     Active Substance: METOPROLOL SUCCINATE
     Route: 048

REACTIONS (2)
  - Nausea [Recovered/Resolved]
  - Vomiting [Unknown]
